FAERS Safety Report 9855128 (Version 1)
Quarter: 2014Q1

REPORT INFORMATION
  Report Type: Report from Study
  Country: US (occurrence: US)
  Receive Date: 20140130
  Receipt Date: 20140130
  Transmission Date: 20141002
  Serious: Yes (Hospitalization)
  Sender: FDA-Public Use
  Company Number: US-ROCHE-1338462

PATIENT
  Age: 82 Year
  Sex: Female
  Weight: 72.6 kg

DRUGS (4)
  1. RITUXIMAB [Suspect]
     Indication: NON-HODGKIN^S LYMPHOMA
     Route: 042
     Dates: start: 20111128, end: 20120418
  2. INOTUZUMAB OZOGAMICIN [Suspect]
     Indication: NON-HODGKIN^S LYMPHOMA
     Route: 042
     Dates: start: 20111129, end: 20120419
  3. ATENOLOL [Concomitant]
     Indication: HYPERTENSION
     Route: 048
     Dates: start: 20100423
  4. RESTENIL [Concomitant]
     Route: 048
     Dates: start: 20100216

REACTIONS (1)
  - Gastrointestinal haemorrhage [Recovered/Resolved]
